FAERS Safety Report 8128874-1 (Version None)
Quarter: 2012Q1

REPORT INFORMATION
  Report Type: 
  Country: None (occurrence: None)
  Receive Date: 20120210
  Receipt Date: 20110415
  Transmission Date: 20120608
  Serious: No
  Sender: FDA-Public Use
  Company Number: US-BRISTOL-MYERS SQUIBB COMPANY-15678774

PATIENT
  Age: 83 Year
  Sex: Female
  Weight: 53 kg

DRUGS (3)
  1. METHOTREXATE [Concomitant]
  2. PREDNISONE TAB [Concomitant]
  3. ORENCIA [Suspect]
     Dosage: STARTED 2 AND HALF MONTHS BACK

REACTIONS (4)
  - PALPITATIONS [None]
  - CONDITION AGGRAVATED [None]
  - SWELLING [None]
  - RASH [None]
